FAERS Safety Report 4383669-X (Version None)
Quarter: 2004Q2

REPORT INFORMATION
  Report Type: 
  Country: None (occurrence: None)
  Receive Date: 20040623
  Receipt Date: 20040615
  Transmission Date: 20050107
  Serious: Yes (Other)
  Sender: FDA-Public Use
  Company Number: 2004 0157

PATIENT
  Age: 49 Year
  Sex: Male

DRUGS (1)
  1. ZANTAC [Suspect]
     Dosage: 300MG PER DAY
     Route: 048

REACTIONS (2)
  - ANAEMIA [None]
  - VITAMIN B12 DEFICIENCY [None]
